FAERS Safety Report 8881994 (Version 1)
Quarter: 2012Q4

REPORT INFORMATION
  Report Type: 
  Country: DE (occurrence: DE)
  Receive Date: 20121105
  Receipt Date: 20121105
  Transmission Date: 20130627
  Serious: Yes (Other)
  Sender: FDA-Public Use
  Company Number: DE-JNJFOC-20121015770

PATIENT
  Sex: Female
  Weight: 60 kg

DRUGS (1)
  1. RISPERDAL [Suspect]
     Indication: PRODUCT USED FOR UNKNOWN INDICATION
     Dosage: 30 tablets of 1mg
     Route: 048
     Dates: start: 20121027, end: 20121027

REACTIONS (3)
  - Suicide attempt [Unknown]
  - Overdose [Unknown]
  - Agitation [Unknown]
